FAERS Safety Report 6306172-6 (Version None)
Quarter: 2009Q3

REPORT INFORMATION
  Report Type: 
  Country: None (occurrence: None)
  Receive Date: 20090812
  Receipt Date: 20090731
  Transmission Date: 20100115
  Serious: Yes (Hospitalization)
  Sender: FDA-Public Use
  Company Number: US-ROCHE-647771

PATIENT
  Age: 31 Year
  Sex: Female

DRUGS (8)
  1. MYCOPHENOLATE MOFETIL [Suspect]
     Indication: DRUG USE FOR UNKNOWN INDICATION
     Route: 065
  2. IPILIMUMAB [Suspect]
     Indication: HODGKIN'S DISEASE
     Dosage: 188 MG FOR TOTAL OF 3 COURSES
     Route: 042
     Dates: start: 20090313, end: 20090423
  3. IPILIMUMAB [Suspect]
     Route: 042
     Dates: end: 20090515
  4. DEXAMETHASONE [Suspect]
     Indication: DRUG USE FOR UNKNOWN INDICATION
     Route: 065
  5. BACTRIM [Concomitant]
  6. FAMCICLOVIR [Concomitant]
  7. OMEPRAZOLE [Concomitant]
  8. SYNTHROID [Concomitant]

REACTIONS (2)
  - LUNG INFILTRATION [None]
  - PNEUMONITIS [None]
